FAERS Safety Report 25735526 (Version 2)
Quarter: 2025Q4

REPORT INFORMATION
  Report Type: Report from Study
  Country: CA (occurrence: CA)
  Receive Date: 20250828
  Receipt Date: 20251014
  Transmission Date: 20260118
  Serious: Yes (Other)
  Sender: LUNDBECK
  Company Number: CA-LUNDBECK-DKLU4011500

PATIENT
  Age: 20 Year
  Sex: Female

DRUGS (4)
  1. VYEPTI [Suspect]
     Active Substance: EPTINEZUMAB-JJMR
     Indication: Migraine
     Dosage: 100 MILLIGRAM
     Route: 041
     Dates: start: 20241206, end: 20250306
  2. VYEPTI [Suspect]
     Active Substance: EPTINEZUMAB-JJMR
     Dosage: 300 MILLIGRAM
     Route: 041
     Dates: start: 20250227
  3. TYLENOL [Concomitant]
     Active Substance: ACETAMINOPHEN
     Indication: Arthralgia
  4. MODAFINIL [Concomitant]
     Active Substance: MODAFINIL
     Indication: Hypersomnia
     Dosage: 25 MILLIGRAM

REACTIONS (3)
  - Arthralgia [Recovering/Resolving]
  - Cyst [Recovering/Resolving]
  - Hypersomnia [Unknown]
